FAERS Safety Report 20466824 (Version 1)
Quarter: 2022Q1

REPORT INFORMATION
  Report Type: Spontaneous
  Country: FR (occurrence: FR)
  Receive Date: 20220214
  Receipt Date: 20220214
  Transmission Date: 20220423
  Serious: Yes (Congenital Anomaly, Other)
  Sender: FDA-Public Use
  Company Number: FR-ABBVIE-22K-056-4272705-00

PATIENT
  Sex: Male
  Weight: 2.83 kg

DRUGS (1)
  1. VALPROATE SODIUM [Suspect]
     Active Substance: VALPROATE SODIUM
     Indication: Maternal exposure timing unspecified
     Route: 064

REACTIONS (23)
  - Communication disorder [Unknown]
  - Cognitive disorder [Unknown]
  - Language disorder [Unknown]
  - Behaviour disorder [Unknown]
  - Jaundice neonatal [Unknown]
  - Bronchiolitis [Unknown]
  - Dehydration [Unknown]
  - Strabismus [Unknown]
  - Laryngomalacia [Unknown]
  - Echolalia [Unknown]
  - Stereotypy [Unknown]
  - Hydrocele [Unknown]
  - Cryptorchism [Unknown]
  - Sleep apnoea syndrome [Unknown]
  - Circumcision [Unknown]
  - Aphasia [Unknown]
  - Talipes [Unknown]
  - Unevaluable event [Unknown]
  - Autism spectrum disorder [Unknown]
  - Disturbance in attention [Unknown]
  - Developmental delay [Unknown]
  - Autism spectrum disorder [Unknown]
  - Foetal exposure during pregnancy [Unknown]

NARRATIVE: CASE EVENT DATE: 20090310
